FAERS Safety Report 9000274 (Version 1)
Quarter: 2013Q1

REPORT INFORMATION
  Report Type: Spontaneous
  Country: GB (occurrence: GB)
  Receive Date: 20130106
  Receipt Date: 20130106
  Transmission Date: 20140127
  Serious: Yes (Life-Threatening)
  Sender: FDA-Public Use
  Company Number: GB-JNJFOC-20130101795

PATIENT
  Age: 76 Year
  Sex: Female
  Weight: 80 kg

DRUGS (14)
  1. XARELTO [Suspect]
     Indication: THROMBOSIS PROPHYLAXIS
     Route: 048
     Dates: start: 20121205, end: 20121206
  2. XARELTO [Suspect]
     Indication: HIP ARTHROPLASTY
     Route: 048
     Dates: start: 20121205, end: 20121206
  3. PARACETAMOL [Concomitant]
     Route: 065
  4. PERINDOPRIL [Concomitant]
     Route: 065
  5. VITAMIN K [Concomitant]
     Route: 065
  6. CEFUROXIME [Concomitant]
     Route: 065
  7. FUROSEMIDE [Concomitant]
     Route: 065
  8. GENTAMICIN [Concomitant]
     Route: 065
  9. PROPRANOLOL [Concomitant]
     Route: 065
  10. TRANEXAMIC ACID [Concomitant]
     Route: 065
  11. BENDROFLUMETHIAZIDE [Concomitant]
     Route: 065
  12. ANTIBIOTICS [Concomitant]
     Route: 065
  13. ANAESTHETICS [Concomitant]
     Indication: HIP ARTHROPLASTY
     Route: 065
  14. MORPHINE [Concomitant]

REACTIONS (4)
  - Hypotension [Not Recovered/Not Resolved]
  - Renal failure acute [Not Recovered/Not Resolved]
  - Malaise [Not Recovered/Not Resolved]
  - Coagulopathy [Recovering/Resolving]
